FAERS Safety Report 24008642 (Version 2)
Quarter: 2024Q3

REPORT INFORMATION
  Report Type: Spontaneous
  Country: US (occurrence: US)
  Receive Date: 20240625
  Receipt Date: 20240712
  Transmission Date: 20241016
  Serious: No
  Sender: ALK-ABELLO
  Company Number: US-ALK-ABELLO A/S-2024AA002372

PATIENT

DRUGS (4)
  1. FOOD - PLANT SOURCE, ALMOND PRUNUS AMYGDALUS [Suspect]
     Active Substance: ALMOND
     Indication: Skin test
  2. BRAZIL NUT [Suspect]
     Active Substance: BRAZIL NUT
     Indication: Skin test
  3. PISTACHIO NUT [Suspect]
     Active Substance: PISTACHIO
     Indication: Skin test
  4. CARYA ILLINOINENSIS POLLEN [Suspect]
     Active Substance: CARYA ILLINOINENSIS POLLEN
     Indication: Skin test

REACTIONS (1)
  - False negative investigation result [Unknown]
